FAERS Safety Report 8419997-8 (Version None)
Quarter: 2012Q2

REPORT INFORMATION
  Report Type: 
  Country: None (occurrence: None)
  Receive Date: 20120607
  Receipt Date: 20120601
  Transmission Date: 20120825
  Serious: Yes (Hospitalization)
  Sender: FDA-Public Use
  Company Number: US-TEVA-341256USA

PATIENT
  Sex: Male

DRUGS (14)
  1. HYDROCHLOROTHIAZDE TAB [Concomitant]
     Dates: start: 20100209
  2. LISINOPRIL [Concomitant]
     Dates: start: 20100329
  3. METHOTREXATE [Suspect]
     Indication: RHEUMATOID ARTHRITIS
     Dosage: 2.1429 MILLIGRAM;
     Route: 048
     Dates: start: 20100226, end: 20100707
  4. ADALIMUMAB [Suspect]
     Indication: RHEUMATOID ARTHRITIS
     Dosage: 40 MILLIGRAM;
     Route: 058
     Dates: start: 20100416, end: 20101014
  5. OMEPRAZOLE [Concomitant]
     Dates: start: 20100209
  6. MULTI-VITAMIN [Concomitant]
  7. VITAMIN B COMPLEX CAP [Concomitant]
  8. COLECALCIFEROL [Concomitant]
  9. ATENOLOL [Concomitant]
     Dates: start: 20100209
  10. FOLIC ACID [Concomitant]
     Dates: start: 20100129
  11. ACETAMINOPHEN AND CODEINE PHOSPHATE [Concomitant]
  12. METHOTREXATE [Suspect]
     Route: 048
     Dates: start: 20100707
  13. ACETYLSALICYLIC ACID SRT [Concomitant]
  14. CALCIUM [Concomitant]

REACTIONS (1)
  - CLOSTRIDIAL INFECTION [None]
